FAERS Safety Report 7827621-8 (Version None)
Quarter: 2011Q4

REPORT INFORMATION
  Report Type: 
  Country: None (occurrence: None)
  Receive Date: 20111020
  Receipt Date: 20111010
  Transmission Date: 20120403
  Serious: Yes (Other)
  Sender: FDA-Public Use
  Company Number: KR-ALLERGAN-1113325US

PATIENT
  Sex: Male

DRUGS (1)
  1. PRED FORTE [Suspect]
     Indication: OPTIC NEURITIS
     Dosage: UNK
     Route: 047

REACTIONS (1)
  - UVEITIS [None]
